FAERS Safety Report 12701354 (Version 1)
Quarter: 2016Q3

REPORT INFORMATION
  Report Type: Spontaneous
  Country: FR (occurrence: FR)
  Receive Date: 20160831
  Receipt Date: 20160831
  Transmission Date: 20161109
  Serious: Yes (Hospitalization, Other)
  Sender: FDA-Public Use
  Company Number: FR-ASTRAZENECA-2016SE90861

PATIENT
  Age: 59 Year
  Sex: Male

DRUGS (7)
  1. BACTRIM [Suspect]
     Active Substance: SULFAMETHOXAZOLE\TRIMETHOPRIM
     Indication: INFECTION PROPHYLAXIS
     Route: 048
     Dates: start: 201607, end: 20160726
  2. DIFICLIR [Suspect]
     Active Substance: FIDAXOMICIN
     Indication: CLOSTRIDIUM DIFFICILE COLITIS
     Route: 042
     Dates: start: 20160716, end: 20160726
  3. NOXAFIL [Concomitant]
     Active Substance: POSACONAZOLE
  4. MEROPENEM. [Suspect]
     Active Substance: MEROPENEM
     Indication: PYREXIA
     Dosage: MYLAN (NON AZ PRODUCT)
     Route: 042
     Dates: start: 20160718, end: 20160802
  5. INEXIUM [Suspect]
     Active Substance: ESOMEPRAZOLE
     Route: 048
     Dates: start: 2016, end: 20160728
  6. ZARZIO [Concomitant]
     Active Substance: FILGRASTIM
  7. AVODART [Concomitant]
     Active Substance: DUTASTERIDE

REACTIONS (3)
  - Clostridium difficile colitis [Unknown]
  - Condition aggravated [Recovering/Resolving]
  - Bone marrow failure [Recovering/Resolving]

NARRATIVE: CASE EVENT DATE: 201607
